FAERS Safety Report 5965564-5 (Version None)
Quarter: 2008Q4

REPORT INFORMATION
  Report Type: 
  Country: None (occurrence: None)
  Receive Date: 20081125
  Receipt Date: 20080222
  Transmission Date: 20090506
  Serious: Yes (Other)
  Sender: FDA-Public Use
  Company Number: US-AMGEN-KDL241273

PATIENT
  Sex: Male

DRUGS (13)
  1. ENBREL [Suspect]
     Indication: PSORIATIC ARTHROPATHY
     Route: 058
     Dates: start: 20040728
  2. ENBREL [Suspect]
     Indication: PSORIASIS
  3. METHOTREXATE [Concomitant]
     Route: 048
     Dates: start: 19970101
  4. FOLIC ACID [Concomitant]
     Dates: start: 20071105
  5. LOPID [Concomitant]
  6. ZETIA [Concomitant]
  7. AZELAIC ACID [Concomitant]
     Route: 061
     Dates: start: 20051207
  8. LIPITOR [Concomitant]
  9. FISH OIL [Concomitant]
  10. SALICYLIC ACID [Concomitant]
     Route: 061
     Dates: start: 20070821
  11. TOPROL-XL [Concomitant]
     Dates: start: 20060724
  12. TRICOR [Concomitant]
     Dates: start: 20060724
  13. DESONIDE [Concomitant]
     Route: 061
     Dates: start: 20070821

REACTIONS (2)
  - BASAL CELL CARCINOMA [None]
  - SQUAMOUS CELL CARCINOMA OF SKIN [None]
